FAERS Safety Report 21967372 (Version 1)
Quarter: 2023Q1

REPORT INFORMATION
  Report Type: Spontaneous
  Country: US (occurrence: None)
  Receive Date: 20230207
  Receipt Date: 20230207
  Transmission Date: 20230418
  Serious: Yes (Hospitalization)
  Sender: FDA-Public Use
  Company Number: None

PATIENT
  Age: 83 Year
  Sex: Male
  Weight: 73.03 kg

DRUGS (12)
  1. CAPECITABINE [Suspect]
     Active Substance: CAPECITABINE
     Indication: Colon cancer
     Dosage: FREQUENCY : TWICE A DAY;?
     Route: 048
  2. AMIODARONE HYDROCHLORIDE [Concomitant]
     Active Substance: AMIODARONE HYDROCHLORIDE
  3. AMITRIPTYLINE [Concomitant]
     Active Substance: AMITRIPTYLINE
  4. ATORVASTATIN [Concomitant]
     Active Substance: ATORVASTATIN
  5. CILOSTAZOL [Concomitant]
     Active Substance: CILOSTAZOL
  6. CITALOPRAM [Concomitant]
     Active Substance: CITALOPRAM HYDROBROMIDE
  7. IBUPROFEN [Concomitant]
     Active Substance: IBUPROFEN
  8. METOPROLOL SUCCINATE [Concomitant]
     Active Substance: METOPROLOL SUCCINATE
  9. NITROLINGUAL [Concomitant]
     Active Substance: NITROGLYCERIN
  10. PANTOPRAZOLE [Concomitant]
  11. TORSEMIDE [Concomitant]
     Active Substance: TORSEMIDE
  12. RIVAROXABAN [Concomitant]
     Active Substance: RIVAROXABAN

REACTIONS (1)
  - Amputation [None]
